FAERS Safety Report 7318399-5 (Version None)
Quarter: 2011Q1

REPORT INFORMATION
  Report Type: 
  Country: None (occurrence: None)
  Receive Date: 20110218
  Receipt Date: 20110218
  Transmission Date: 20110831
  Serious: Yes (Hospitalization)
  Sender: FDA-Public Use
  Company Number: None

PATIENT
  Sex: Female
  Weight: 87.9 kg

DRUGS (12)
  1. APREPITANT [Concomitant]
  2. ASPIRIN [Concomitant]
  3. TAXOL [Suspect]
     Dosage: 220 MG
     Dates: end: 20110202
  4. DEXAMETHASONE [Concomitant]
  5. LORAZEPAM [Concomitant]
  6. ONDANSETRON [Concomitant]
  7. PIRIDOXINE [Concomitant]
  8. PROCHLORPERAZINE (COMPAZINE) [Concomitant]
  9. AMLODIPINE [Concomitant]
  10. CISPLATIN [Suspect]
     Dosage: 100 MG
     Dates: end: 20110202
  11. KEPPRA [Concomitant]
  12. CRESTOR (ROSUVASTIN) [Concomitant]

REACTIONS (3)
  - BODY TEMPERATURE INCREASED [None]
  - CONFUSIONAL STATE [None]
  - APHASIA [None]
